FAERS Safety Report 6839398-3 (Version None)
Quarter: 2010Q2

REPORT INFORMATION
  Report Type: 
  Country: None (occurrence: None)
  Receive Date: 20100629
  Receipt Date: 20100504
  Transmission Date: 20101027
  Serious: No
  Sender: FDA-Public Use
  Company Number: US-WYE-H14951410

PATIENT
  Sex: Female

DRUGS (2)
  1. PRISTIQ [Suspect]
     Dates: start: 20100504
  2. TRAMADOL HCL [Suspect]

REACTIONS (4)
  - HALLUCINATION [None]
  - INCOHERENT [None]
  - SOMNOLENCE [None]
  - VISION BLURRED [None]
